FAERS Safety Report 23279093 (Version 2)
Quarter: 2024Q1

REPORT INFORMATION
  Report Type: Spontaneous
  Country: US (occurrence: US)
  Receive Date: 20231209
  Receipt Date: 20240315
  Transmission Date: 20240410
  Serious: Yes (Other)
  Sender: FDA-Public Use
  Company Number: US-RADIUS HEALTH, INC.-2023US006211

PATIENT

DRUGS (2)
  1. TYMLOS [Suspect]
     Active Substance: ABALOPARATIDE
     Indication: Senile osteoporosis
     Dosage: 80 MICROGRAM, QD
     Route: 058
     Dates: start: 202312
  2. RUCONEST [Concomitant]
     Active Substance: CONESTAT ALFA

REACTIONS (7)
  - Hypoxia [Unknown]
  - Dyspnoea [Unknown]
  - Vulvovaginal pruritus [Unknown]
  - Nausea [Unknown]
  - Vomiting [Recovered/Resolved]
  - Asthenia [Unknown]
  - Dizziness [Unknown]
